FAERS Safety Report 8820317 (Version 1)
Quarter: 2012Q4

REPORT INFORMATION
  Report Type: Report from Study
  Country: JP (occurrence: JP)
  Receive Date: 20121002
  Receipt Date: 20121002
  Transmission Date: 20130627
  Serious: Yes (Other)
  Sender: FDA-Public Use
  Company Number: JP-009507513-2012SP029680

PATIENT
  Age: 63 Year
  Sex: Female
  Weight: 50 kg

DRUGS (13)
  1. PEGINTERFERON ALFA-2B [Suspect]
     Indication: HEPATITIS C
     Dosage: 1.5 Microgram per kilogram, Unknown
     Route: 058
     Dates: start: 20120320, end: 20120409
  2. PEGINTERFERON ALFA-2B [Suspect]
     Dosage: 1.2 Microgram per kilogram, Unknown
     Route: 058
     Dates: start: 20120416, end: 20120827
  3. REBETOL [Suspect]
     Indication: HEPATITIS C
     Dosage: 600 mg, QD
     Route: 048
     Dates: start: 20120320, end: 20120408
  4. REBETOL [Suspect]
     Dosage: 400 mg, QD
     Route: 048
     Dates: start: 20120409, end: 20120430
  5. REBETOL [Suspect]
     Dosage: 200 mg, QD
     Route: 048
     Dates: start: 20120501, end: 20120527
  6. REBETOL [Suspect]
     Dosage: 200 mg,qd
     Dates: start: 20120611, end: 20120827
  7. TELAVIC [Suspect]
     Indication: HEPATITIS C
     Dosage: 1500 mg, QD
     Route: 048
     Dates: start: 20120320, end: 20120520
  8. TELAVIC [Suspect]
     Dosage: 1000 mg,qd
     Route: 048
     Dates: start: 20120521, end: 20120527
  9. LIVALO [Concomitant]
     Indication: HYPERLIPIDAEMIA
     Dosage: FORMULATION :POR
     Route: 048
  10. EPADEL [Concomitant]
     Indication: HYPERLIPIDAEMIA
     Dosage: FORMULATION :POR
     Route: 048
  11. FEROTYM [Concomitant]
     Indication: IRON DEFICIENCY ANAEMIA
     Dosage: FORMULATION :POR
     Route: 048
  12. CLARITIN REDITABS [Concomitant]
     Indication: PROPHYLAXIS
     Dosage: 10 mg, QD
     Route: 048
  13. ACINON [Concomitant]
     Indication: GASTRIC ULCER
     Dosage: 150 mg, qd

REACTIONS (4)
  - Anaemia [Not Recovered/Not Resolved]
  - Anaemia [Not Recovered/Not Resolved]
  - Anaemia [Not Recovered/Not Resolved]
  - Rash [Recovered/Resolved]
